FAERS Safety Report 9049509 (Version 2)
Quarter: 2013Q3

REPORT INFORMATION
  Report Type: Spontaneous
  Country: US (occurrence: US)
  Receive Date: 20130205
  Receipt Date: 20130802
  Transmission Date: 20140515
  Serious: Yes (Death, Hospitalization, Other)
  Sender: FDA-Public Use
  Company Number: US-B.I. PHARMACEUTICALS,INC./RIDGEFIELD-2013-BI-02895BP

PATIENT
  Sex: Female
  Weight: 117.93 kg

DRUGS (11)
  1. PRADAXA [Suspect]
     Indication: ATRIAL FIBRILLATION
     Dates: start: 20120125, end: 20120217
  2. AMLODIPINE BESYLATE [Concomitant]
  3. ATORVASTATIN [Concomitant]
  4. BD INSULIN [Concomitant]
  5. CLONAZEPAM [Concomitant]
  6. DONEPEZIL [Concomitant]
  7. EFFIENT [Concomitant]
  8. FEXOFENADINE [Concomitant]
  9. LISINOPRIL [Concomitant]
  10. NOVOLOG [Concomitant]
  11. ASPIRIN [Concomitant]

REACTIONS (3)
  - Death [Fatal]
  - Gastrointestinal haemorrhage [Unknown]
  - Myocardial infarction [Unknown]
